FAERS Safety Report 8515349-0 (Version None)
Quarter: 2012Q3

REPORT INFORMATION
  Report Type: 
  Country: None (occurrence: None)
  Receive Date: 20120717
  Receipt Date: 20120703
  Transmission Date: 20120928
  Serious: Yes (Hospitalization, Other)
  Sender: FDA-Public Use
  Company Number: US-ELI_LILLY_AND_COMPANY-US201207001994

PATIENT
  Sex: Female

DRUGS (6)
  1. GEODON [Concomitant]
     Route: 064
  2. CYMBALTA [Suspect]
     Dosage: 60 MG, QD
     Dates: start: 20070101, end: 20080101
  3. DEPAKOTE [Concomitant]
     Route: 064
  4. GEODON [Concomitant]
     Route: 064
  5. DEPAKOTE [Concomitant]
     Route: 064
  6. CYMBALTA [Suspect]
     Indication: BIPOLAR DISORDER
     Dosage: 60 MG, QD
     Dates: start: 20070101, end: 20080101

REACTIONS (6)
  - PLACENTA PRAEVIA [None]
  - GESTATIONAL DIABETES [None]
  - OFF LABEL USE [None]
  - THREATENED LABOUR [None]
  - MATERNAL EXPOSURE DURING PREGNANCY [None]
  - AMNIOTIC FLUID VOLUME DECREASED [None]
